FAERS Safety Report 4425015-9 (Version None)
Quarter: 2004Q3

REPORT INFORMATION
  Report Type: 
  Country: None (occurrence: None)
  Receive Date: 20040813
  Receipt Date: 20040805
  Transmission Date: 20050211
  Serious: Yes (Other)
  Sender: FDA-Public Use
  Company Number: US-JNJFOC-20040502752

PATIENT
  Sex: Male

DRUGS (9)
  1. DURAGESIC [Suspect]
     Route: 062
  2. DURAGESIC [Suspect]
     Route: 062
  3. DURAGESIC [Suspect]
     Route: 062
  4. TRAZODONE HCL [Concomitant]
     Indication: DRUG USE FOR UNKNOWN INDICATION
     Route: 049
     Dates: start: 20040504, end: 20040511
  5. PROZAC [Concomitant]
     Indication: BIPOLAR DISORDER
     Route: 049
  6. DEPAKOTE [Concomitant]
     Indication: BIPOLAR DISORDER
     Route: 049
  7. KLONOPIN [Concomitant]
     Route: 049
  8. ROSIGLITAZONE MALEATE [Concomitant]
     Route: 049
  9. METFORMIN HCL [Concomitant]
     Route: 049

REACTIONS (17)
  - BALANCE DISORDER [None]
  - DELUSION [None]
  - DIPLOPIA [None]
  - DISTURBANCE IN ATTENTION [None]
  - DRY MOUTH [None]
  - DYSPNOEA [None]
  - FATIGUE [None]
  - HALLUCINATION [None]
  - HEADACHE [None]
  - HYPERHIDROSIS [None]
  - LOSS OF CONSCIOUSNESS [None]
  - MUSCULAR WEAKNESS [None]
  - PHARMACEUTICAL PRODUCT COMPLAINT [None]
  - PHARYNGITIS [None]
  - PHARYNGOLARYNGEAL PAIN [None]
  - THERAPEUTIC RESPONSE DECREASED [None]
  - VOMITING [None]
